FAERS Safety Report 8595638-4 (Version None)
Quarter: 2012Q3

REPORT INFORMATION
  Report Type: 
  Country: None (occurrence: None)
  Receive Date: 20120815
  Receipt Date: 20120806
  Transmission Date: 20120928
  Serious: No
  Sender: FDA-Public Use
  Company Number: US-B.I. PHARMACEUTICALS,INC./RIDGEFIELD-2012-BP-17693BP

PATIENT
  Sex: Female

DRUGS (10)
  1. FLUTICASONE PROPIONATE [Concomitant]
     Indication: DYSPNOEA
     Route: 055
     Dates: start: 20091201
  2. METRONIDAZOLE TOPICAL CREAM 7.5% [Concomitant]
     Indication: SKIN INFECTION
  3. SINGULAIR [Concomitant]
     Indication: ASTHMA
  4. PRADAXA [Suspect]
     Indication: ATRIAL FIBRILLATION
     Route: 048
     Dates: start: 20110711, end: 20110911
  5. HYDROCORTISONE VALERATE CREAM 0.2% [Concomitant]
     Indication: PSORIASIS
  6. FLONASE [Concomitant]
     Indication: HYPERSENSITIVITY
     Route: 045
  7. SPIRIVA [Suspect]
     Indication: EMPHYSEMA
     Dosage: 18 MCG
     Route: 055
     Dates: start: 20110401
  8. BONIVA [Concomitant]
     Indication: SUPPLEMENTATION THERAPY
     Dosage: 150 MG
     Route: 048
  9. PROVENTIL GENTLEHALER [Concomitant]
     Indication: ASTHMA
     Route: 055
  10. SINGULAIR [Concomitant]
     Indication: HYPERSENSITIVITY
     Dosage: 10 MG
     Route: 048

REACTIONS (3)
  - DYSPNOEA [None]
  - VISUAL IMPAIRMENT [None]
  - HAEMORRHAGE [None]
